FAERS Safety Report 4879305-6 (Version None)
Quarter: 2006Q1

REPORT INFORMATION
  Report Type: 
  Country: None (occurrence: None)
  Receive Date: 20060112
  Receipt Date: 20050829
  Transmission Date: 20060701
  Serious: Yes (Hospitalization, Other)
  Sender: FDA-Public Use
  Company Number: US-MERCK-0508USA04740

PATIENT
  Age: 58 Year
  Sex: Male
  Weight: 61 kg

DRUGS (1)
  1. VIOXX [Suspect]
     Indication: PAIN
     Route: 048
     Dates: start: 20020101, end: 20040101

REACTIONS (10)
  - CEREBROVASCULAR ACCIDENT [None]
  - CEREBROVASCULAR DISORDER [None]
  - CHEST PAIN [None]
  - CONTUSION [None]
  - CONVULSION [None]
  - COUGH [None]
  - NEPHROTIC SYNDROME [None]
  - PROTEINURIA [None]
  - SICKLE CELL ANAEMIA [None]
  - SICKLE CELL ANAEMIA WITH CRISIS [None]
